FAERS Safety Report 7941503-2 (Version None)
Quarter: 2011Q4

REPORT INFORMATION
  Report Type: 
  Country: None (occurrence: None)
  Receive Date: 20111128
  Receipt Date: 20111114
  Transmission Date: 20120403
  Serious: Yes (Life-Threatening, Hospitalization, Other)
  Sender: FDA-Public Use
  Company Number: DE-JNJFOC-20111110888

PATIENT
  Age: 49 Year
  Sex: Male

DRUGS (8)
  1. DOXORUBICIN HCL [Suspect]
     Indication: SARCOMA
     Route: 042
     Dates: start: 20110516, end: 20110516
  2. TRABECTEDIN [Concomitant]
     Indication: SARCOMA
     Dosage: TOTAL DOSE OF 3 MG
     Route: 065
     Dates: start: 20110607, end: 20110607
  3. ENALAPRIL MALEATE [Concomitant]
     Indication: HYPERTENSION
     Route: 065
  4. DOXORUBICIN HCL [Suspect]
     Route: 042
     Dates: start: 20110718, end: 20110718
  5. TRABECTEDIN [Concomitant]
     Dosage: TOTAL DOSE OF 3 MG
     Route: 065
     Dates: start: 20110516, end: 20110516
  6. TRABECTEDIN [Concomitant]
     Dosage: TOTAL DOSE OF 2.5 MG
     Route: 065
     Dates: start: 20110718, end: 20110718
  7. DOXORUBICIN HCL [Suspect]
     Route: 042
     Dates: start: 20110607, end: 20110607
  8. DEXAMETHASONE [Concomitant]
     Route: 065

REACTIONS (4)
  - VENOUS THROMBOSIS [None]
  - PYREXIA [None]
  - PERICARDITIS [None]
  - CARDIAC FAILURE [None]
